FAERS Safety Report 9719094 (Version 2)
Quarter: 2014Q1

REPORT INFORMATION
  Report Type: Report from Study
  Country: TR (occurrence: TR)
  Receive Date: 20131127
  Receipt Date: 20140127
  Transmission Date: 20141002
  Serious: Yes (Hospitalization)
  Sender: FDA-Public Use
  Company Number: TR-US-EMD SERONO, INC.-7252242

PATIENT
  Sex: Female
  Weight: 61 kg

DRUGS (6)
  1. REBIF [Suspect]
     Indication: MULTIPLE SCLEROSIS
     Route: 058
     Dates: start: 201105
  2. MINOSET [Suspect]
     Indication: ANALGESIC THERAPY
     Route: 048
     Dates: start: 201105
  3. MINOSET [Suspect]
     Indication: ANTIPYRESIS
  4. LIORESAL [Suspect]
     Indication: MUSCLE RELAXANT THERAPY
     Route: 048
     Dates: start: 2009
  5. FESOTERODINE [Suspect]
     Indication: DIURETIC THERAPY
     Route: 048
     Dates: start: 2009
  6. COVERSYL /00790701/ [Suspect]
     Indication: HYPERTENSION
     Route: 048
     Dates: start: 2009

REACTIONS (2)
  - Pulmonary mass [Not Recovered/Not Resolved]
  - Aphthous stomatitis [Recovering/Resolving]
